FAERS Safety Report 10688759 (Version 4)
Quarter: 2016Q1

REPORT INFORMATION
  Report Type: Spontaneous
  Country: GB (occurrence: GB)
  Receive Date: 20150103
  Receipt Date: 20160325
  Transmission Date: 20160525
  Serious: Yes (Hospitalization, Other)
  Sender: FDA-Public Use
  Company Number: GB-JNJFOC-20141216463

PATIENT
  Age: 1 Day
  Sex: Female
  Weight: 2.55 kg

DRUGS (6)
  1. METRONIDAZOLE. [Concomitant]
     Active Substance: METRONIDAZOLE
     Indication: PYELONEPHRITIS
     Route: 064
  2. ENOXAPARIN [Concomitant]
     Active Substance: ENOXAPARIN
     Route: 064
  3. CEFRADINE [Concomitant]
     Active Substance: CEPHRADINE
     Indication: PYELONEPHRITIS
     Route: 064
  4. COCODAMOL [Suspect]
     Active Substance: ACETAMINOPHEN\CODEINE PHOSPHATE
     Indication: BACK DISORDER
     Dosage: STAGGERED PARACETAMOL OVERDOSE, OVER WEEKS AND DAYS PRIOR TO DELIVERY
     Route: 064
  5. FLUOXETINE [Concomitant]
     Active Substance: FLUOXETINE HYDROCHLORIDE
     Route: 064
  6. PERFALGAN [Suspect]
     Active Substance: ACETAMINOPHEN
     Indication: BACK DISORDER
     Route: 064

REACTIONS (17)
  - Incubator therapy [Unknown]
  - Hepatic function abnormal [Unknown]
  - Foetal monitoring abnormal [Unknown]
  - Aphasia [Unknown]
  - Tremor [Unknown]
  - Foetal arrhythmia [Recovered/Resolved]
  - Malaise [Unknown]
  - Developmental delay [Not Recovered/Not Resolved]
  - Respiratory distress [Recovered/Resolved]
  - Drug dependence [Unknown]
  - Overdose [Unknown]
  - Premature baby [Unknown]
  - Foetal exposure during pregnancy [Unknown]
  - Abasia [Unknown]
  - Jaundice neonatal [Recovered/Resolved]
  - Drug withdrawal syndrome neonatal [Recovered/Resolved]
  - Hepatotoxicity [Unknown]

NARRATIVE: CASE EVENT DATE: 20140930
